FAERS Safety Report 6242142-4 (Version None)
Quarter: 2009Q2

REPORT INFORMATION
  Report Type: 
  Country: None (occurrence: None)
  Receive Date: 20090622
  Receipt Date: 20090622
  Transmission Date: 20091009
  Serious: Yes (Other)
  Sender: FDA-Public Use
  Company Number: None

PATIENT
  Age: 40 Year
  Sex: Male
  Weight: 70 kg

DRUGS (1)
  1. LEVETIRACETAM 500 MYLAN [Suspect]
     Indication: EPILEPSY
     Dosage: 500 BID PO
     Route: 048
     Dates: start: 20090425, end: 20090602

REACTIONS (4)
  - AFFECT LABILITY [None]
  - AGGRESSION [None]
  - IMPULSIVE BEHAVIOUR [None]
  - PRODUCT SUBSTITUTION ISSUE [None]
